FAERS Safety Report 19118349 (Version 8)
Quarter: 2021Q3

REPORT INFORMATION
  Report Type: Report from Study
  Country: CO (occurrence: CO)
  Receive Date: 20210410
  Receipt Date: 20210824
  Transmission Date: 20211014
  Serious: No
  Sender: FDA-Public Use
  Company Number: CO-TAKEDA-CO201920663

PATIENT
  Age: 47 Year
  Sex: Female
  Weight: 74 kg

DRUGS (9)
  1. TRAYENTA [Concomitant]
     Active Substance: LINAGLIPTIN
     Indication: PRODUCT USED FOR UNKNOWN INDICATION
     Dosage: UNK
     Route: 048
  2. ICATIBANT [Suspect]
     Active Substance: ICATIBANT ACETATE
     Dosage: 1 MILLIGRAM
     Route: 058
     Dates: start: 20190621
  3. LINAGLIPTIN [Concomitant]
     Active Substance: LINAGLIPTIN
  4. ICATIBANT [Suspect]
     Active Substance: ICATIBANT ACETATE
     Indication: HEREDITARY ANGIOEDEMA
     Dosage: 30 MILLIGRAM
     Route: 058
     Dates: start: 20180810
  5. ICATIBANT [Suspect]
     Active Substance: ICATIBANT ACETATE
     Dosage: 30 MILLIGRAM
     Route: 058
     Dates: start: 20191117
  6. ICATIBANT [Suspect]
     Active Substance: ICATIBANT ACETATE
     Dosage: 1 MILLIGRAM
     Route: 058
     Dates: start: 20190621
  7. ICATIBANT [Suspect]
     Active Substance: ICATIBANT ACETATE
     Dosage: 30 MILLIGRAM
     Route: 058
     Dates: start: 20191117
  8. TRANEXAMIC ACID. [Concomitant]
     Active Substance: TRANEXAMIC ACID
     Dosage: 500 MILLIGRAM (2 TABLETS), Q8HR
     Route: 065
  9. ICATIBANT [Suspect]
     Active Substance: ICATIBANT ACETATE
     Indication: HEREDITARY ANGIOEDEMA
     Dosage: 30 MILLIGRAM
     Route: 058
     Dates: start: 20180810

REACTIONS (19)
  - Anxiety [Not Recovered/Not Resolved]
  - Genital discomfort [Recovered/Resolved]
  - Illness [Not Recovered/Not Resolved]
  - Muscle spasms [Recovering/Resolving]
  - Weight increased [Unknown]
  - Feeling abnormal [Not Recovered/Not Resolved]
  - Heavy menstrual bleeding [Unknown]
  - Oropharyngeal pain [Recovering/Resolving]
  - Tachycardia [Recovering/Resolving]
  - Headache [Not Recovered/Not Resolved]
  - Genital pain [Recovered/Resolved]
  - Dysphonia [Recovering/Resolving]
  - Dry throat [Not Recovered/Not Resolved]
  - Pruritus genital [Recovered/Resolved]
  - Nasal congestion [Not Recovered/Not Resolved]
  - Urinary tract infection [Not Recovered/Not Resolved]
  - Malaise [Not Recovered/Not Resolved]
  - Aphasia [Unknown]
  - Back pain [Not Recovered/Not Resolved]

NARRATIVE: CASE EVENT DATE: 20191216
